FAERS Safety Report 19708290 (Version 1)
Quarter: 2021Q3

REPORT INFORMATION
  Report Type: Spontaneous
  Country: US (occurrence: US)
  Receive Date: 20210817
  Receipt Date: 20210817
  Transmission Date: 20211014
  Serious: Yes (Other)
  Sender: FDA-Public Use
  Company Number: None

PATIENT
  Age: 63 Year
  Sex: Male
  Weight: 63.5 kg

DRUGS (15)
  1. CALCIUM GLUCONATE IV [Concomitant]
     Dates: start: 20210807, end: 20210807
  2. ENOXAPARIN 40 MG/KG SC [Concomitant]
     Dates: start: 20210806, end: 20210807
  3. ACETAMINOPHEN 650 MG PO [Concomitant]
     Dates: start: 20210806, end: 20210806
  4. LABETALOL 10 MG IV [Concomitant]
     Dates: start: 20210807, end: 20210807
  5. GABAPENTIN 600 MG PO [Concomitant]
     Dates: start: 20210806, end: 20210807
  6. MAGNESIUM 2G IV [Concomitant]
     Dates: start: 20210807, end: 20210807
  7. FENTANYL IV DRIP [Concomitant]
     Dates: start: 20210807, end: 20210807
  8. POTASSIUM CHLORIDE IV 40 MEQ [Concomitant]
     Dates: start: 20210807, end: 20210807
  9. ALBUTEROL AEROSOL INHALER [Concomitant]
     Dates: start: 20210807, end: 20210807
  10. ONDANSETRON 4 MG IV [Concomitant]
     Dates: start: 20210806, end: 20210806
  11. PROPOFOL IV DRIP [Concomitant]
     Dates: start: 20210807, end: 20210807
  12. REGEN?COV [Suspect]
     Active Substance: CASIRIVIMAB\IMDEVIMAB
     Indication: COVID-19
     Dosage: ?          OTHER FREQUENCY:ONCE;?
     Route: 041
  13. NICARDIPINE IV DRIP [Concomitant]
     Dates: start: 20210807, end: 20210807
  14. NOREPINEPHRINE IV DRIP [Concomitant]
     Dates: start: 20210807, end: 20210807
  15. PLASMA?LYTE 1,000 ML [Concomitant]
     Dates: start: 20210807, end: 20210807

REACTIONS (4)
  - Thalamus haemorrhage [None]
  - Hydrocephalus [None]
  - Intraventricular haemorrhage [None]
  - Brain oedema [None]

NARRATIVE: CASE EVENT DATE: 20210807
